FAERS Safety Report 8891132 (Version 1)
Quarter: 2012Q4

REPORT INFORMATION
  Report Type: 
  Country: CA (occurrence: CA)
  Receive Date: 20121107
  Receipt Date: 20121107
  Transmission Date: 20130627
  Serious: Yes (Other)
  Sender: FDA-Public Use
  Company Number: CA-BAYER-2012-113959

PATIENT
  Age: 22 Year
  Sex: Female

DRUGS (1)
  1. MIRENA [Suspect]
     Dosage: 20 mcg/24hr, CONT
     Route: 015
     Dates: start: 201107

REACTIONS (7)
  - Menstruation irregular [Not Recovered/Not Resolved]
  - Dysmenorrhoea [None]
  - Menorrhagia [None]
  - Ovarian cystectomy [None]
  - Pain [None]
  - Headache [None]
  - Migraine [None]
